FAERS Safety Report 8340297-9 (Version None)
Quarter: 2012Q2

REPORT INFORMATION
  Report Type: 
  Country: None (occurrence: None)
  Receive Date: 20120507
  Receipt Date: 20120507
  Transmission Date: 20120825
  Serious: No
  Sender: FDA-Public Use
  Company Number: None

PATIENT
  Age: 44 Year
  Sex: Male

DRUGS (1)
  1. QUETIAPINE [Suspect]
     Indication: DEPRESSION
     Dosage: |DOSAGETEXT: 400.0 MG||STRENGTH: 400 MG||FREQ: DAILY||ROUTE: ORAL|
     Route: 048

REACTIONS (2)
  - ABDOMINAL PAIN UPPER [None]
  - DRUG INEFFECTIVE [None]
